FAERS Safety Report 19173462 (Version 1)
Quarter: 2021Q2

REPORT INFORMATION
  Report Type: Spontaneous
  Country: US (occurrence: US)
  Receive Date: 20210422
  Receipt Date: 20210422
  Transmission Date: 20210717
  Serious: Yes (Hospitalization)
  Sender: FDA-Public Use
  Company Number: None

PATIENT
  Age: 57 Year
  Sex: Female

DRUGS (1)
  1. LISINOPRIL 5 MG TABLET [Suspect]
     Active Substance: LISINOPRIL
     Indication: HYPERTENSION
     Dosage: ?          QUANTITY:1 TABLET(S);?
     Route: 048
     Dates: start: 20210418, end: 20210420

REACTIONS (5)
  - Abdominal pain [None]
  - Diarrhoea [None]
  - Vomiting [None]
  - Angioedema [None]
  - Intestinal angioedema [None]

NARRATIVE: CASE EVENT DATE: 20210421
